FAERS Safety Report 9385538 (Version 3)
Quarter: 2014Q2

REPORT INFORMATION
  Report Type: Spontaneous
  Country: US (occurrence: US)
  Receive Date: 20130705
  Receipt Date: 20140408
  Transmission Date: 20141212
  Serious: Yes (Death, Hospitalization)
  Sender: FDA-Public Use
  Company Number: US-GLAXOSMITHKLINE-A1030376A

PATIENT
  Age: 80 Year
  Sex: Female

DRUGS (1)
  1. AVANDIA [Suspect]
     Indication: DIABETES MELLITUS
     Dosage: 4MG PER DAY
     Route: 048
     Dates: start: 1999, end: 20091223

REACTIONS (8)
  - Death [Fatal]
  - Myocardial infarction [Unknown]
  - Atrial fibrillation [Unknown]
  - Respiratory failure [Unknown]
  - Cardiac failure congestive [Unknown]
  - Sick sinus syndrome [Unknown]
  - Pulmonary oedema [Unknown]
  - Pleural effusion [Unknown]
